FAERS Safety Report 16710987 (Version 2)
Quarter: 2019Q3

REPORT INFORMATION
  Report Type: Report from Study
  Country: None (occurrence: UY)
  Receive Date: 20190816
  Receipt Date: 20190816
  Transmission Date: 20191004
  Serious: Yes (Life-Threatening, Other)
  Sender: FDA-Public Use
  Company Number: UY-ABBVIE-19K-168-2890154-00

PATIENT
  Age: 33 Year
  Sex: Female

DRUGS (1)
  1. HUMIRA [Suspect]
     Active Substance: ADALIMUMAB
     Indication: RHEUMATOID ARTHRITIS
     Route: 058
     Dates: start: 20150713

REACTIONS (2)
  - Suicide attempt [Recovering/Resolving]
  - Intentional overdose [Recovering/Resolving]

NARRATIVE: CASE EVENT DATE: 201907
